FAERS Safety Report 7252309-4 (Version None)
Quarter: 2011Q1

REPORT INFORMATION
  Report Type: 
  Country: None (occurrence: None)
  Receive Date: 20110129
  Receipt Date: 20100111
  Transmission Date: 20110831
  Serious: No
  Sender: FDA-Public Use
  Company Number: US-ABBOTT-10P-163-0619138-00

PATIENT
  Sex: Female
  Weight: 106.69 kg

DRUGS (8)
  1. HUMIRA [Suspect]
     Indication: RHEUMATOID ARTHRITIS
     Dates: start: 20091101, end: 20091201
  2. BYETTA [Concomitant]
     Indication: DIABETES MELLITUS
  3. METFORMIN HYDROCHLORIDE [Concomitant]
     Indication: DIABETES MELLITUS
  4. METHOTREXATE [Concomitant]
     Indication: DIABETES MELLITUS
  5. HUMIRA [Suspect]
     Dates: start: 20090106
  6. SULFASALAZINE [Suspect]
     Indication: RHEUMATOID ARTHRITIS
  7. HYDROXYCHLOROQUINE SULFATE [Concomitant]
     Indication: RHEUMATOID ARTHRITIS
  8. NAPROXEN [Concomitant]
     Indication: RHEUMATOID ARTHRITIS

REACTIONS (1)
  - NASOPHARYNGITIS [None]
